FAERS Safety Report 17455187 (Version 1)
Quarter: 2020Q1

REPORT INFORMATION
  Report Type: Spontaneous
  Country: TR (occurrence: TR)
  Receive Date: 20200225
  Receipt Date: 20200225
  Transmission Date: 20200409
  Serious: Yes (Other)
  Sender: FDA-Public Use
  Company Number: TR-DENTSPLY-2020SCDP000071

PATIENT
  Age: 52 Year
  Sex: Male

DRUGS (2)
  1. PRILOCAINE [Suspect]
     Active Substance: PRILOCAINE
     Dosage: 10 MILLILITER, 2 MG/ML
     Route: 058
  2. PRILOCAINE [Suspect]
     Active Substance: PRILOCAINE
     Indication: LOCAL ANAESTHESIA
     Dosage: 5 MILLILITER, 20 MG/ML
     Route: 058

REACTIONS (6)
  - Blindness transient [Recovered/Resolved]
  - Hypoaesthesia oral [Recovered/Resolved]
  - Dizziness [Recovered/Resolved]
  - Somnolence [Recovered/Resolved]
  - Blood pressure decreased [Recovered/Resolved]
  - Local anaesthetic systemic toxicity [Recovered/Resolved]
